FAERS Safety Report 4757802-1 (Version None)
Quarter: 2005Q3

REPORT INFORMATION
  Report Type: 
  Country: None (occurrence: None)
  Receive Date: 20050831
  Receipt Date: 20050824
  Transmission Date: 20060218
  Serious: Yes (Death, Hospitalization)
  Sender: FDA-Public Use
  Company Number: 200517547GDDC

PATIENT
  Sex: Male

DRUGS (2)
  1. NASACORT [Suspect]
     Indication: SEASONAL ALLERGY
     Route: 045
  2. DOSTINEX [Suspect]
     Indication: PITUITARY TUMOUR
     Route: 048

REACTIONS (3)
  - DRUG INTERACTION [None]
  - POLYTRAUMATISM [None]
  - ROAD TRAFFIC ACCIDENT [None]
